FAERS Safety Report 11031340 (Version 1)
Quarter: 2015Q2

REPORT INFORMATION
  Report Type: Spontaneous
  Country: US (occurrence: US)
  Receive Date: 20150415
  Receipt Date: 20150415
  Transmission Date: 20150821
  Serious: No
  Sender: FDA-Public Use
  Company Number: US-PFIZER INC-2015121154

PATIENT
  Age: 53 Year
  Sex: Male
  Weight: 109 kg

DRUGS (6)
  1. VITAMIN D [Concomitant]
     Active Substance: CHOLECALCIFEROL
     Dosage: ALMOST EVERY DAY
  2. TELMISARTAN. [Concomitant]
     Active Substance: TELMISARTAN
     Indication: BLOOD PRESSURE ABNORMAL
     Dosage: 40 MG, 1X/DAY
     Route: 048
  3. LYRICA [Suspect]
     Active Substance: PREGABALIN
     Indication: NERVOUS SYSTEM DISORDER
     Dosage: 150 MG, DAILY
     Route: 048
     Dates: start: 20150319, end: 20150328
  4. MAGNESIUM [Concomitant]
     Active Substance: MAGNESIUM
     Dosage: ALMOST EVERY DAY
  5. VITAMIN E [Concomitant]
     Active Substance: .ALPHA.-TOCOPHEROL
     Dosage: ALMOST EVERY DAY
  6. ZINC [Concomitant]
     Active Substance: ZINC\ZINC CHLORIDE
     Dosage: ALMOST EVERY DAY

REACTIONS (9)
  - Insomnia [Unknown]
  - Dyspnoea [Not Recovered/Not Resolved]
  - Disturbance in attention [Unknown]
  - Muscle spasms [Not Recovered/Not Resolved]
  - Pain [Not Recovered/Not Resolved]
  - Myalgia [Not Recovered/Not Resolved]
  - Muscular weakness [Unknown]
  - Nausea [Unknown]
  - Chest discomfort [Unknown]

NARRATIVE: CASE EVENT DATE: 201503
